FAERS Safety Report 6670892-4 (Version None)
Quarter: 2010Q2

REPORT INFORMATION
  Report Type: 
  Country: None (occurrence: None)
  Receive Date: 20100407
  Receipt Date: 20100322
  Transmission Date: 20101027
  Serious: No
  Sender: FDA-Public Use
  Company Number: US-B.I. PHARMACEUTICALS,INC./RIDGEFIELD-2010-BP-02622BP

PATIENT
  Age: 74 Year
  Sex: Female
  Weight: 127 kg

DRUGS (5)
  1. MICARDIS [Suspect]
     Dosage: 40 MG
     Dates: start: 20100209, end: 20100222
  2. METFORMIN [Concomitant]
     Dosage: 1000 MG
     Dates: start: 20061212
  3. HYDROCODONE BITARTRATE AND ACETAMINOPHEN [Concomitant]
  4. COUMADIN [Concomitant]
     Dosage: 5 MG
  5. COREG [Concomitant]
     Dosage: 12.5 MG

REACTIONS (1)
  - HEADACHE [None]
